FAERS Safety Report 9160454 (Version 1)
Quarter: 2013Q1

REPORT INFORMATION
  Report Type: Spontaneous
  Country: US (occurrence: None)
  Receive Date: 20130219
  Receipt Date: 20130219
  Transmission Date: 20140127
  Serious: Yes (Hospitalization, Other)
  Sender: FDA-Public Use
  Company Number: 2013P1001983

PATIENT
  Age: 45 Year
  Sex: Female
  Weight: 77.11 kg

DRUGS (7)
  1. ATENOLOL [Suspect]
     Indication: HYPERTENSION
     Dates: end: 2006
  2. NORVASC 10 MG [Suspect]
     Dates: start: 1998
  3. PROTONIX [Suspect]
     Dates: end: 2008
  4. SYNTHROID [Suspect]
     Dates: start: 1995
  5. HYDREAUX [Suspect]
     Dates: start: 2001
  6. COREG [Suspect]
     Dates: start: 2003, end: 2013
  7. ANAGRELIDE [Suspect]

REACTIONS (4)
  - Thrombosis [None]
  - Erosive oesophagitis [None]
  - Myocardial infarction [None]
  - Hypotension [None]
